FAERS Safety Report 5196286-9 (Version None)
Quarter: 2006Q4

REPORT INFORMATION
  Report Type: 
  Country: None (occurrence: None)
  Receive Date: 20061222
  Receipt Date: 20061208
  Transmission Date: 20070319
  Serious: Yes (Death)
  Sender: FDA-Public Use
  Company Number: 2006151717

PATIENT

DRUGS (2)
  1. EPIRUBICIN [Suspect]
     Indication: HEPATITIS C
     Dosage: INTRA-ARTERIAL
     Route: 013
  2. LIPIODOL ULTRA-FLUID (ETHIODIZED OIL) [Concomitant]

REACTIONS (3)
  - ANTI-PLATELET ANTIBODY POSITIVE [None]
  - EMBOLISM [None]
  - PLATELET COUNT DECREASED [None]
